FAERS Safety Report 6218814-4 (Version None)
Quarter: 2009Q2

REPORT INFORMATION
  Report Type: 
  Country: None (occurrence: None)
  Receive Date: 20090608
  Receipt Date: 20090525
  Transmission Date: 20091009
  Serious: Yes (Hospitalization, Other)
  Sender: FDA-Public Use
  Company Number: SE-ELI_LILLY_AND_COMPANY-SE200906000648

PATIENT
  Age: 41 Year
  Sex: Male

DRUGS (3)
  1. ZYPREXA [Suspect]
     Indication: SCHIZOPHRENIA
     Dosage: 20 MG, DAILY (1/D)
     Route: 048
     Dates: start: 20020201, end: 20031224
  2. TRILAFON DECANOATE [Concomitant]
  3. CLOMIPRAMINE HCL [Concomitant]

REACTIONS (11)
  - ABDOMINAL ABSCESS [None]
  - BLOOD CREATINE PHOSPHOKINASE INCREASED [None]
  - BLOOD CREATININE INCREASED [None]
  - DIABETES MELLITUS [None]
  - FATIGUE [None]
  - KETOACIDOSIS [None]
  - LOSS OF CONSCIOUSNESS [None]
  - MYOGLOBIN BLOOD INCREASED [None]
  - PNEUMONIA [None]
  - POLLAKIURIA [None]
  - THIRST [None]
